FAERS Safety Report 6113055-3 (Version None)
Quarter: 2009Q1

REPORT INFORMATION
  Report Type: 
  Country: None (occurrence: None)
  Receive Date: 20090312
  Receipt Date: 20090225
  Transmission Date: 20090719
  Serious: Yes (Hospitalization, Other)
  Sender: FDA-Public Use
  Company Number: CA-PURDUE-CAN_2009_0000919

PATIENT
  Age: 38 Year
  Sex: Female
  Weight: 73 kg

DRUGS (2)
  1. DILAUDID [Suspect]
     Indication: PAIN
  2. HUMIRA [Suspect]
     Indication: CROHN'S DISEASE
     Dosage: 40 MG, SEE TEXT
     Route: 058
     Dates: start: 20090131

REACTIONS (4)
  - ABDOMINAL PAIN [None]
  - NAUSEA [None]
  - PRURITUS [None]
  - VOMITING [None]
